FAERS Safety Report 10052282 (Version 1)
Quarter: 2014Q2

REPORT INFORMATION
  Report Type: Spontaneous
  Country: US (occurrence: None)
  Receive Date: 20140401
  Receipt Date: 20140401
  Transmission Date: 20141212
  Serious: Yes (Other)
  Sender: FDA-Public Use
  Company Number: None

PATIENT
  Age: 65 Year
  Sex: Female
  Weight: 51.8 kg

DRUGS (1)
  1. DULOXETINE HCL [Suspect]
     Indication: SPINAL PAIN
     Dosage: 60 HCL 1 DAILY 1/15/2014
     Dates: start: 20140113, end: 20140307

REACTIONS (8)
  - Product substitution issue [None]
  - Joint swelling [None]
  - Chills [None]
  - Plantar erythema [None]
  - Insomnia [None]
  - Abasia [None]
  - Feeling hot [None]
  - Oedema peripheral [None]
